FAERS Safety Report 9922718 (Version 1)
Quarter: 2014Q1

REPORT INFORMATION
  Report Type: Spontaneous
  Country: US (occurrence: US)
  Receive Date: 20140225
  Receipt Date: 20140225
  Transmission Date: 20141002
  Serious: Yes (Life-Threatening, Hospitalization)
  Sender: FDA-Public Use
  Company Number: PHHY2014US020995

PATIENT
  Age: 58 Year
  Sex: Female

DRUGS (4)
  1. DEXAMETHASONE [Suspect]
     Indication: ANGIOEDEMA
     Route: 042
  2. FAMOTIDINE [Suspect]
     Indication: ANGIOEDEMA
  3. DIPHENHYDRAMINE [Suspect]
     Indication: ANGIOEDEMA
  4. EPINEPHRINE [Suspect]
     Indication: ANGIOEDEMA
     Route: 058

REACTIONS (3)
  - Respiratory failure [Unknown]
  - Angioedema [Unknown]
  - Condition aggravated [Unknown]
